FAERS Safety Report 9557031 (Version 1)
Quarter: 2013Q3

REPORT INFORMATION
  Report Type: Spontaneous
  Country: MY (occurrence: MY)
  Receive Date: 20130926
  Receipt Date: 20130926
  Transmission Date: 20140515
  Serious: Yes (Hospitalization)
  Sender: FDA-Public Use
  Company Number: PHHY2013MY105288

PATIENT
  Sex: 0

DRUGS (1)
  1. CURAM LB [Suspect]
     Route: 048

REACTIONS (3)
  - Haematemesis [Unknown]
  - Dyspnoea [Unknown]
  - Skin discolouration [Unknown]
